FAERS Safety Report 9398760 (Version 3)
Quarter: 2015Q1

REPORT INFORMATION
  Report Type: Report from Study
  Country: US (occurrence: US)
  Receive Date: 20130713
  Receipt Date: 20150317
  Transmission Date: 20150721
  Serious: Yes (Death)
  Sender: FDA-Public Use
  Company Number: US-ROCHE-1248588

PATIENT
  Age: 52 Year
  Sex: Male

DRUGS (7)
  1. DECADRON [Concomitant]
     Active Substance: DEXAMETHASONE
     Route: 048
  2. AVASTIN [Suspect]
     Active Substance: BEVACIZUMAB
     Indication: LUNG NEOPLASM MALIGNANT
     Dosage: ON 25/APR/2011, 16/MAY/2011, 06/JUN/2011, 27/JUN/2011
     Route: 042
     Dates: start: 20110404
  3. ALOXI [Concomitant]
     Active Substance: PALONOSETRON HYDROCHLORIDE
     Route: 042
  4. ALIMTA [Concomitant]
     Active Substance: PEMETREXED DISODIUM
     Route: 065
  5. DECADRON [Concomitant]
     Active Substance: DEXAMETHASONE
     Route: 042
  6. FOLIC ACID. [Concomitant]
     Active Substance: FOLIC ACID
     Route: 048
  7. ATIVAN [Concomitant]
     Active Substance: LORAZEPAM
     Route: 042

REACTIONS (1)
  - Anaemia of malignant disease [Fatal]

NARRATIVE: CASE EVENT DATE: 20120414
